FAERS Safety Report 7957159-9 (Version None)
Quarter: 2011Q4

REPORT INFORMATION
  Report Type: 
  Country: None (occurrence: None)
  Receive Date: 20111205
  Receipt Date: 20111125
  Transmission Date: 20120403
  Serious: Yes (Other)
  Sender: FDA-Public Use
  Company Number: CA-ASTRAZENECA-2011SE64606

PATIENT
  Age: 42 Year
  Sex: Female

DRUGS (3)
  1. PERINDOPRIL ERBUMINE [Concomitant]
  2. CRESTOR [Suspect]
     Route: 048
     Dates: end: 20111031
  3. BISOPROLOL FUMARATE [Concomitant]

REACTIONS (1)
  - PARAESTHESIA ORAL [None]
